FAERS Safety Report 22642699 (Version 1)
Quarter: 2023Q2

REPORT INFORMATION
  Report Type: Other
  Country: ES (occurrence: ES)
  Receive Date: 20230627
  Receipt Date: 20230627
  Transmission Date: 20230722
  Serious: Yes (Hospitalization)
  Sender: FDA-Public Use
  Company Number: ES-ALVOGEN-2023091742

PATIENT
  Age: 5 Year
  Sex: Male

DRUGS (1)
  1. LIDOCAINE [Suspect]
     Active Substance: LIDOCAINE
     Indication: Molluscum contagiosum
     Dosage: FULL TUBE WITH A CONCENTRATION OF 40 MG/G THROUGHOUT THE TRUNK AND EXTREMITIES

REACTIONS (5)
  - Toxicity to various agents [Recovering/Resolving]
  - Generalised tonic-clonic seizure [Recovering/Resolving]
  - Respiratory depression [Recovering/Resolving]
  - Loss of consciousness [Recovering/Resolving]
  - Off label use [Unknown]
